FAERS Safety Report 13483049 (Version 2)
Quarter: 2017Q2

REPORT INFORMATION
  Report Type: Spontaneous
  Country: US (occurrence: US)
  Receive Date: 20170426
  Receipt Date: 20170525
  Transmission Date: 20170830
  Serious: No
  Sender: FDA-Public Use
  Company Number: PHEH2017US011336

PATIENT
  Age: 4 Year
  Sex: Female
  Weight: 32.4 kg

DRUGS (1)
  1. ILARIS [Suspect]
     Active Substance: CANAKINUMAB
     Indication: MUCKLE-WELLS SYNDROME
     Dosage: 97 MG, EVERY 8 WEEKS
     Route: 058
     Dates: start: 20130311, end: 20140920

REACTIONS (3)
  - Alopecia [Recovering/Resolving]
  - Joint stiffness [Unknown]
  - Tooth discolouration [Not Recovered/Not Resolved]

NARRATIVE: CASE EVENT DATE: 201304
